FAERS Safety Report 11026622 (Version 3)
Quarter: 2015Q2

REPORT INFORMATION
  Report Type: Spontaneous
  Country: JP (occurrence: JP)
  Receive Date: 20150414
  Receipt Date: 20150424
  Transmission Date: 20150821
  Serious: Yes (Other)
  Sender: FDA-Public Use
  Company Number: JP-ELI_LILLY_AND_COMPANY-JP201504004120

PATIENT
  Age: 38 Year
  Sex: Female

DRUGS (22)
  1. HUMALOG [Suspect]
     Active Substance: INSULIN LISPRO
     Dosage: 23 IU, UNK
     Route: 058
     Dates: start: 20140619, end: 20140621
  2. HUMALOG [Suspect]
     Active Substance: INSULIN LISPRO
     Dosage: 67 IU, UNK
     Route: 058
     Dates: start: 20140720, end: 20140723
  3. HUMALOG [Suspect]
     Active Substance: INSULIN LISPRO
     Indication: GESTATIONAL DIABETES
     Dosage: 6 IU, UNK
     Route: 058
     Dates: start: 20140612, end: 20140612
  4. HUMALOG [Suspect]
     Active Substance: INSULIN LISPRO
     Dosage: 64 IU, UNK
     Route: 058
     Dates: start: 20140724, end: 20140725
  5. HUMALOG [Suspect]
     Active Substance: INSULIN LISPRO
     Dosage: 53 IU, UNK
     Route: 058
     Dates: start: 20140727, end: 20140727
  6. HUMALOG [Suspect]
     Active Substance: INSULIN LISPRO
     Dosage: 61 IU, UNK
     Route: 058
     Dates: start: 20140707, end: 20140709
  7. HUMALOG [Suspect]
     Active Substance: INSULIN LISPRO
     Dosage: 69 IU, UNK
     Route: 058
     Dates: start: 20140713, end: 20140714
  8. HUMALOG [Suspect]
     Active Substance: INSULIN LISPRO
     Dosage: 38 IU, UNK
     Route: 058
     Dates: start: 20140702, end: 20140702
  9. HUMALOG [Suspect]
     Active Substance: INSULIN LISPRO
     Dosage: 74 IU, UNK
     Route: 058
     Dates: start: 20140716, end: 20140716
  10. HUMALOG [Suspect]
     Active Substance: INSULIN LISPRO
     Dosage: 60 IU, UNK
     Route: 058
     Dates: start: 20140726, end: 20140726
  11. HUMALOG [Suspect]
     Active Substance: INSULIN LISPRO
     Dosage: 40 IU, UNK
     Route: 058
     Dates: start: 20140703, end: 20140704
  12. HUMALOG [Suspect]
     Active Substance: INSULIN LISPRO
     Dosage: 47 IU, UNK
     Route: 058
     Dates: start: 20140728, end: 20140806
  13. HUMALOG [Suspect]
     Active Substance: INSULIN LISPRO
     Dosage: 30 IU, UNK
     Route: 058
     Dates: start: 20140807, end: 20140807
  14. HUMALOG [Suspect]
     Active Substance: INSULIN LISPRO
     Dosage: 36 IU, UNK
     Route: 058
     Dates: start: 20140701, end: 20140701
  15. HUMALOG [Suspect]
     Active Substance: INSULIN LISPRO
     Dosage: 47 IU, UNK
     Route: 058
     Dates: start: 20140705, end: 20140706
  16. HUMALOG [Suspect]
     Active Substance: INSULIN LISPRO
     Dosage: 64 IU, UNK
     Route: 058
     Dates: start: 20140710, end: 20140710
  17. HUMALOG [Suspect]
     Active Substance: INSULIN LISPRO
     Dosage: 72 IU, UNK
     Route: 058
     Dates: start: 20140717, end: 20140719
  18. HUMALOG [Suspect]
     Active Substance: INSULIN LISPRO
     Dosage: 16 IU, UNK
     Route: 058
     Dates: start: 20140613, end: 20140617
  19. HUMALOG [Suspect]
     Active Substance: INSULIN LISPRO
     Dosage: 20 IU, UNK
     Route: 058
     Dates: start: 20140618, end: 20140618
  20. HUMALOG [Suspect]
     Active Substance: INSULIN LISPRO
     Dosage: 34 IU, UNK
     Route: 058
     Dates: start: 20140627, end: 20140630
  21. HUMALOG [Suspect]
     Active Substance: INSULIN LISPRO
     Dosage: 67 IU, UNK
     Route: 058
     Dates: start: 20140711, end: 20140712
  22. HUMALOG [Suspect]
     Active Substance: INSULIN LISPRO
     Dosage: 72 IU, UNK
     Route: 058
     Dates: start: 20140715, end: 20140715

REACTIONS (4)
  - Maternal exposure during pregnancy [Unknown]
  - Hyperglycaemia [Unknown]
  - Hypoglycaemia [Recovered/Resolved]
  - Threatened labour [Unknown]

NARRATIVE: CASE EVENT DATE: 20140618
